FAERS Safety Report 20187381 (Version 8)
Quarter: 2022Q3

REPORT INFORMATION
  Report Type: Report from Study
  Country: US (occurrence: US)
  Receive Date: 20211215
  Receipt Date: 20220722
  Transmission Date: 20221027
  Serious: Yes (Death, Hospitalization, Other)
  Sender: FDA-Public Use
  Company Number: US-INSMED, INC.-2021-10009-US

PATIENT
  Sex: Male

DRUGS (2)
  1. ARIKAYCE [Suspect]
     Active Substance: AMIKACIN
     Indication: Mycobacterium avium complex infection
     Dosage: 590 MILLIGRAM, QD
     Route: 055
     Dates: start: 2021, end: 2022
  2. ARIKAYCE [Suspect]
     Active Substance: AMIKACIN
     Dosage: 590 MILLIGRAM, QD
     Route: 055
     Dates: start: 2022, end: 202207

REACTIONS (18)
  - Death [Fatal]
  - Heart rate increased [Unknown]
  - Oxygen saturation decreased [Unknown]
  - Haemorrhage [Unknown]
  - Hospitalisation [Unknown]
  - Pneumothorax [Unknown]
  - Vomiting [Unknown]
  - Weight decreased [Not Recovered/Not Resolved]
  - Asthenia [Not Recovered/Not Resolved]
  - Fatigue [Not Recovered/Not Resolved]
  - Cough [Unknown]
  - Abdominal pain [Not Recovered/Not Resolved]
  - Abdominal discomfort [Unknown]
  - Aphonia [Recovering/Resolving]
  - Cough [Recovered/Resolved]
  - Dysphonia [Unknown]
  - Nausea [Not Recovered/Not Resolved]
  - Dyspnoea [Recovered/Resolved]

NARRATIVE: CASE EVENT DATE: 20210101
